FAERS Safety Report 17534063 (Version 3)
Quarter: 2020Q1

REPORT INFORMATION
  Report Type: Spontaneous
  Country: US (occurrence: US)
  Receive Date: 20200312
  Receipt Date: 20200318
  Transmission Date: 20200409
  Serious: Yes (Hospitalization)
  Sender: FDA-Public Use
  Company Number: US-PFIZER INC-2020106001

PATIENT
  Age: 75 Year
  Sex: Male

DRUGS (5)
  1. MORPHINE [Concomitant]
     Active Substance: MORPHINE
     Indication: OSTEOARTHRITIS
     Dosage: 63 MG, UNK (EQUIVALENTS ON DAY 2)
  2. MORPHINE [Concomitant]
     Active Substance: MORPHINE
     Dosage: 15 MG, UNK (EQUIVALENTS ON DAY 3)
  3. MORPHINE [Concomitant]
     Active Substance: MORPHINE
     Indication: ARTHRALGIA
     Dosage: 40 MG, UNK (EQUIVALENTS ON DAY 1)
     Route: 048
  4. CEPHALEXINE [Concomitant]
     Active Substance: CEPHALEXIN
     Indication: PROPHYLAXIS
     Dosage: UNK
  5. GABAPENTIN. [Suspect]
     Active Substance: GABAPENTIN
     Indication: OSTEOARTHRITIS
     Dosage: 1200 MG, DAILY

REACTIONS (5)
  - Toxicity to various agents [Recovering/Resolving]
  - Off label use [Unknown]
  - Withdrawal syndrome [Unknown]
  - Product use in unapproved indication [Unknown]
  - Blood creatinine increased [Unknown]
